FAERS Safety Report 15999957 (Version 1)
Quarter: 2019Q1

REPORT INFORMATION
  Report Type: Spontaneous
  Country: ES (occurrence: ES)
  Receive Date: 20190225
  Receipt Date: 20190225
  Transmission Date: 20190418
  Serious: Yes (Death, Life-Threatening)
  Sender: FDA-Public Use
  Company Number: ES-PFIZER INC-2019079787

PATIENT
  Age: 52 Year
  Sex: Male

DRUGS (2)
  1. VORICONAZOLE. [Suspect]
     Active Substance: VORICONAZOLE
     Dosage: 250 MG, 2X/DAY ( AND THEN A MAINTENANCE DOSE 250MG C/12H.)
     Route: 042
     Dates: start: 20190109, end: 20190129
  2. VORICONAZOLE. [Suspect]
     Active Substance: VORICONAZOLE
     Indication: BRONCHOPULMONARY ASPERGILLOSIS
     Dosage: 350 MG (CHARGE DOSE OF 350 MG FOR THE FIRST 24 HOURS)
     Route: 041
     Dates: start: 20190108, end: 20190108

REACTIONS (3)
  - Leukopenia [Unknown]
  - Septic shock [Fatal]
  - Thrombocytopenia [Unknown]

NARRATIVE: CASE EVENT DATE: 20190123
